FAERS Safety Report 6816660-1 (Version None)
Quarter: 2010Q3

REPORT INFORMATION
  Report Type: 
  Country: None (occurrence: None)
  Receive Date: 20100706
  Receipt Date: 20100625
  Transmission Date: 20110219
  Serious: Yes (Hospitalization)
  Sender: FDA-Public Use
  Company Number: US-JNJFOC-20100510685

PATIENT
  Age: 1 Year
  Sex: Female
  Weight: 10.89 kg

DRUGS (4)
  1. CONCENTRATED TYLENOL INFANT DROPS [Suspect]
     Indication: PYREXIA
  2. CONCENTRATED TYLENOL INFANT DROPS [Suspect]
     Indication: TEETHING
  3. CONCENTRATED MOTRIN INFANTS DROPS [Suspect]
     Indication: PYREXIA
  4. CONCENTRATED MOTRIN INFANTS DROPS [Suspect]
     Indication: TEETHING

REACTIONS (2)
  - CONVULSION [None]
  - PRODUCT QUALITY ISSUE [None]
